FAERS Safety Report 6558398-4 (Version None)
Quarter: 2010Q1

REPORT INFORMATION
  Report Type: 
  Country: None (occurrence: None)
  Receive Date: 20100128
  Receipt Date: 20100128
  Transmission Date: 20100710
  Serious: Yes (Life-Threatening)
  Sender: FDA-Public Use
  Company Number: None

PATIENT
  Age: 39 Year
  Sex: Female
  Weight: 68.0396 kg

DRUGS (1)
  1. PROMETRIUM [Suspect]
     Indication: MENSTRUATION IRREGULAR
     Dosage: 200 MG 1 CAPSULE EACH DAY
     Dates: start: 20100126, end: 20100126

REACTIONS (7)
  - ABASIA [None]
  - APPARENT DEATH [None]
  - DYSPNOEA [None]
  - EUPHORIC MOOD [None]
  - HYPOTONIA [None]
  - INAPPROPRIATE AFFECT [None]
  - PHARYNGEAL OEDEMA [None]
